FAERS Safety Report 7240708-6 (Version None)
Quarter: 2011Q1

REPORT INFORMATION
  Report Type: 
  Country: None (occurrence: None)
  Receive Date: 20110124
  Receipt Date: 20100107
  Transmission Date: 20110831
  Serious: Yes (Other)
  Sender: FDA-Public Use
  Company Number: US-KINGPHARMUSA00001-K200901526

PATIENT
  Sex: Female

DRUGS (7)
  1. EPIPEN [Suspect]
     Dosage: UNK, SINGLE
  2. SPIRIVA [Concomitant]
  3. FLONASE [Concomitant]
  4. ZANTAC [Concomitant]
  5. MAXALT [Concomitant]
  6. YAZ [Concomitant]
  7. PROAIR HFA [Concomitant]

REACTIONS (4)
  - PERIPHERAL ISCHAEMIA [None]
  - SKELETAL INJURY [None]
  - ACCIDENTAL EXPOSURE [None]
  - EXPIRED DRUG ADMINISTERED [None]
